FAERS Safety Report 4438670-4 (Version None)
Quarter: 2004Q3

REPORT INFORMATION
  Report Type: 
  Country: None (occurrence: None)
  Receive Date: 20040827
  Receipt Date: 20040813
  Transmission Date: 20050211
  Serious: Yes (Hospitalization)
  Sender: FDA-Public Use
  Company Number: 2004AP04319

PATIENT
  Age: 53 Year
  Sex: Male

DRUGS (4)
  1. ZOMIG [Suspect]
     Indication: MIGRAINE
     Dosage: 2.5 MG QOD PO
     Route: 048
     Dates: start: 20040510, end: 20040727
  2. IMIGRAN [Suspect]
     Dosage: 50 MG QOD PO
     Route: 048
     Dates: start: 20040223, end: 20040509
  3. ALMARL [Suspect]
     Dosage: 20 MG DAILY PO
     Route: 048
     Dates: start: 20040223
  4. MIGSIS [Concomitant]

REACTIONS (1)
  - BLOOD CREATININE INCREASED [None]
